FAERS Safety Report 18577574 (Version 5)
Quarter: 2021Q3

REPORT INFORMATION
  Report Type: Other
  Country: BG (occurrence: BG)
  Receive Date: 20201203
  Receipt Date: 20210709
  Transmission Date: 20211014
  Serious: Yes (Hospitalization)
  Sender: FDA-Public Use
  Company Number: BG-ROCHE-2713411

PATIENT
  Age: 27 Year
  Sex: Male
  Weight: 65 kg

DRUGS (23)
  1. ASCORBIC ACID. [Concomitant]
     Active Substance: ASCORBIC ACID
     Indication: EPILEPSY
     Route: 048
     Dates: start: 20210113
  2. METHYLPREDNISOLONE. [Concomitant]
     Active Substance: METHYLPREDNISOLONE
     Route: 042
     Dates: start: 20200327, end: 20200327
  3. METHYLPREDNISOLONE. [Concomitant]
     Active Substance: METHYLPREDNISOLONE
     Route: 042
     Dates: start: 20210414, end: 20210414
  4. ALLERGOSAN [Concomitant]
     Indication: PREMEDICATION
     Route: 042
     Dates: start: 20200312, end: 20200312
  5. ALLERGOSAN [Concomitant]
     Route: 042
     Dates: start: 20200327, end: 20200327
  6. PARACETAMOL [Concomitant]
     Active Substance: ACETAMINOPHEN
     Route: 048
     Dates: start: 20200327, end: 20200327
  7. MANITOL [Concomitant]
     Active Substance: MANNITOL
     Indication: EPILEPSY
     Route: 042
     Dates: start: 20210113
  8. PARACETAMOL [Concomitant]
     Active Substance: ACETAMINOPHEN
     Indication: EPILEPSY
     Route: 042
     Dates: start: 20210113, end: 20210119
  9. METHYLPREDNISOLONE. [Concomitant]
     Active Substance: METHYLPREDNISOLONE
     Route: 042
     Dates: start: 20201002, end: 20201002
  10. PARACETAMOL [Concomitant]
     Active Substance: ACETAMINOPHEN
     Route: 048
     Dates: start: 20210414, end: 20210414
  11. FRAXIPARINE [Concomitant]
     Active Substance: NADROPARIN CALCIUM
     Indication: EPILEPSY
     Route: 058
     Dates: start: 20210113, end: 20210119
  12. OCRELIZUMAB. [Suspect]
     Active Substance: OCRELIZUMAB
     Indication: MULTIPLE SCLEROSIS
     Dosage: 300 MG/250 ML?300 MG AT DAY 0 AND 14, THEN 600 MG IN 6 MONTHS
     Route: 042
     Dates: start: 20200312, end: 20200312
  13. METHYLPREDNISOLONE. [Concomitant]
     Active Substance: METHYLPREDNISOLONE
     Indication: PREMEDICATION
     Route: 042
     Dates: start: 20200312, end: 20200312
  14. ALLERGOSAN [Concomitant]
     Route: 042
     Dates: start: 20210414, end: 20210414
  15. CORMAGNESIN [Concomitant]
     Indication: EPILEPSY
     Route: 048
     Dates: start: 20210113, end: 20210119
  16. OCRELIZUMAB. [Suspect]
     Active Substance: OCRELIZUMAB
     Dosage: 600 MG/500 ML
     Route: 042
     Dates: start: 20210414, end: 20210414
  17. DEXAMETHAZONE [Concomitant]
     Active Substance: DEXAMETHASONE
     Indication: EPILEPSY
     Route: 042
     Dates: start: 20210113
  18. PARACETAMOL [Concomitant]
     Active Substance: ACETAMINOPHEN
     Indication: PREMEDICATION
     Route: 048
     Dates: start: 20200312, end: 20200312
  19. PARACETAMOL [Concomitant]
     Active Substance: ACETAMINOPHEN
     Route: 048
     Dates: start: 20201002, end: 20201002
  20. DEPAKINE [Concomitant]
     Active Substance: VALPROATE SODIUM
     Indication: EPILEPSY
     Route: 048
     Dates: start: 20210113
  21. OCRELIZUMAB. [Suspect]
     Active Substance: OCRELIZUMAB
     Dosage: 300 MG/250 ML
     Route: 042
     Dates: start: 20200327, end: 20200327
  22. OCRELIZUMAB. [Suspect]
     Active Substance: OCRELIZUMAB
     Dosage: 600 MG/500 ML
     Route: 042
     Dates: start: 20201002, end: 20201002
  23. ALLERGOSAN [Concomitant]
     Route: 042
     Dates: start: 20201002, end: 20201002

REACTIONS (2)
  - COVID-19 [Recovered/Resolved]
  - Status epilepticus [Recovered/Resolved]

NARRATIVE: CASE EVENT DATE: 20201102
